FAERS Safety Report 13098590 (Version 1)
Quarter: 2017Q1

REPORT INFORMATION
  Report Type: Spontaneous
  Country: US (occurrence: US)
  Receive Date: 20170109
  Receipt Date: 20170109
  Transmission Date: 20170428
  Serious: No
  Sender: FDA-Public Use
  Company Number: US-CELGENEUS-USA-2016118507

PATIENT
  Sex: Female

DRUGS (2)
  1. THALOMID [Suspect]
     Active Substance: THALIDOMIDE
     Indication: PLASMA CELL MYELOMA
     Dosage: 200MG
     Route: 048
     Dates: start: 201512
  2. THALOMID [Suspect]
     Active Substance: THALIDOMIDE
     Dosage: 200MG
     Route: 048
     Dates: start: 201607

REACTIONS (5)
  - Pain [Unknown]
  - Back pain [Unknown]
  - Monoclonal immunoglobulin present [Unknown]
  - Neuropathy peripheral [Unknown]
  - Asthenia [Unknown]
